FAERS Safety Report 7632520-0 (Version None)
Quarter: 2011Q3

REPORT INFORMATION
  Report Type: 
  Country: None (occurrence: None)
  Receive Date: 20110725
  Receipt Date: 20100928
  Transmission Date: 20111222
  Serious: No
  Sender: FDA-Public Use
  Company Number: US-BRISTOL-MYERS SQUIBB COMPANY-15308091

PATIENT
  Age: 77 Year
  Sex: Female

DRUGS (9)
  1. MULTAQ [Suspect]
     Indication: ATRIAL FIBRILLATION
     Dosage: INTERRUPTED FOR ONE DAY + RESTARTED + AGAIN INT FOR FEW DAYS
     Route: 048
     Dates: start: 20100714
  2. DIAZEPAM [Concomitant]
  3. PRAVASTATIN SODIUM [Concomitant]
  4. PRILOSEC [Concomitant]
  5. COUMADIN [Suspect]
  6. DILTIAZEM HCL [Concomitant]
  7. WARFARIN SODIUM [Concomitant]
  8. SOTALOL HCL [Concomitant]
  9. BENADRYL [Concomitant]

REACTIONS (8)
  - CONTUSION [None]
  - PALPITATIONS [None]
  - SOMNOLENCE [None]
  - PARAESTHESIA [None]
  - NAUSEA [None]
  - DIARRHOEA [None]
  - ASTHENIA [None]
  - FATIGUE [None]
